FAERS Safety Report 18796310 (Version 1)
Quarter: 2021Q1

REPORT INFORMATION
  Report Type: Spontaneous
  Country: US (occurrence: US)
  Receive Date: 20210127
  Receipt Date: 20210127
  Transmission Date: 20210419
  Serious: No
  Sender: FDA-Public Use
  Company Number: US-FRESENIUS MEDICAL CARE RENAL THERAPIES GROUP-FMC-2101-000086

PATIENT
  Sex: Female

DRUGS (1)
  1. DELFLEX [Suspect]
     Active Substance: CALCIUM CHLORIDE\DEXTROSE\MAGNESIUM CHLORIDE\SODIUM CHLORIDE\SODIUM LACTATE
     Indication: END STAGE RENAL DISEASE
     Dosage: TTV 11500 ML, TST 9 HOURS 30 MINUTES, 5 FILLS, TX BASED, FV 2300 ML, LFV 0 ML, DWT 01 HOUR 20 MINUTE
     Route: 033

REACTIONS (1)
  - Discomfort [Recovering/Resolving]
